FAERS Safety Report 4295020-4 (Version None)
Quarter: 2004Q1

REPORT INFORMATION
  Report Type: 
  Country: None (occurrence: None)
  Receive Date: 20040212
  Receipt Date: 20040212
  Transmission Date: 20041129
  Serious: Yes (Hospitalization)
  Sender: FDA-Public Use
  Company Number: None

PATIENT
  Age: 29 Year
  Sex: Female

DRUGS (1)
  1. ZYBAN [Suspect]
     Indication: NICOTINE DEPENDENCE
     Dosage: PO BID
     Route: 048
     Dates: start: 20040107

REACTIONS (1)
  - ANAPHYLACTIC REACTION [None]
